FAERS Safety Report 5147492-0 (Version None)
Quarter: 2006Q4

REPORT INFORMATION
  Report Type: 
  Country: None (occurrence: None)
  Receive Date: 20061109
  Receipt Date: 20060907
  Transmission Date: 20070319
  Serious: Yes (Hospitalization)
  Sender: FDA-Public Use
  Company Number: JP-ABBOTT-06P-087-0343449-00

PATIENT
  Sex: Female
  Weight: 44.2 kg

DRUGS (8)
  1. CEFZON CAPSULES [Suspect]
     Indication: INFECTION PROPHYLAXIS
     Route: 048
     Dates: start: 20060607, end: 20060610
  2. ERGOMETRINE MALEATE [Concomitant]
     Indication: DRUG USE FOR UNKNOWN INDICATION
     Dates: start: 20060607, end: 20060610
  3. LOXOT [Concomitant]
     Indication: DRUG USE FOR UNKNOWN INDICATION
     Dates: start: 20060607, end: 20060610
  4. FENELMIN TABLET [Concomitant]
     Indication: DRUG USE FOR UNKNOWN INDICATION
     Dates: start: 20060607, end: 20060620
  5. KAKKON-TO [Concomitant]
     Indication: DRUG USE FOR UNKNOWN INDICATION
     Dates: start: 20060611, end: 20060618
  6. ANYRUME [Concomitant]
     Indication: DRUG USE FOR UNKNOWN INDICATION
     Dates: start: 20060611
  7. ACETAMINOPHEN [Concomitant]
     Indication: DRUG USE FOR UNKNOWN INDICATION
     Dates: start: 20060611
  8. FERROUS SODIUM CITRATE [Concomitant]
     Indication: DRUG USE FOR UNKNOWN INDICATION
     Dates: start: 20060607, end: 20060620

REACTIONS (5)
  - CHOLESTASIS [None]
  - DIARRHOEA [None]
  - HEPATIC FUNCTION ABNORMAL [None]
  - JAUNDICE [None]
  - PRURITUS [None]
